FAERS Safety Report 16019220 (Version 4)
Quarter: 2020Q1

REPORT INFORMATION
  Report Type: Spontaneous
  Country: US (occurrence: US)
  Receive Date: 20190228
  Receipt Date: 20200306
  Transmission Date: 20200409
  Serious: Yes (Death, Other)
  Sender: FDA-Public Use
  Company Number: US-ASTRAZENECA-2018SF47981

PATIENT
  Sex: Female

DRUGS (24)
  1. NEXIUM [Suspect]
     Active Substance: ESOMEPRAZOLE MAGNESIUM
     Route: 048
     Dates: start: 20080123
  2. NABUMETONE. [Concomitant]
     Active Substance: NABUMETONE
  3. SINGULAIR [Concomitant]
     Active Substance: MONTELUKAST SODIUM
  4. NEXIUM [Suspect]
     Active Substance: ESOMEPRAZOLE MAGNESIUM
     Dosage: 40.0MG UNKNOWN
     Route: 048
     Dates: start: 20100304
  5. PRILOSEC [Suspect]
     Active Substance: OMEPRAZOLE MAGNESIUM
     Route: 048
     Dates: start: 20080123
  6. DEXILANT [Suspect]
     Active Substance: DEXLANSOPRAZOLE
     Route: 065
  7. TRAMADOL. [Concomitant]
     Active Substance: TRAMADOL
  8. AMLODIPINE BESYLATE. [Concomitant]
     Active Substance: AMLODIPINE BESYLATE
     Dates: start: 20150205
  9. JANUVIA [Concomitant]
     Active Substance: SITAGLIPTIN PHOSPHATE
  10. ZANTAC [Concomitant]
     Active Substance: RANITIDINE HYDROCHLORIDE
  11. SPIRONOLACTONE. [Concomitant]
     Active Substance: SPIRONOLACTONE
     Dates: start: 20150205
  12. NEXIUM [Suspect]
     Active Substance: ESOMEPRAZOLE MAGNESIUM
     Dosage: 40.0MG UNKNOWN
     Route: 048
     Dates: start: 20150205
  13. PREVACID [Suspect]
     Active Substance: LANSOPRAZOLE
     Route: 065
  14. FUROSEMIDE. [Concomitant]
     Active Substance: FUROSEMIDE
  15. GLIMEPIRIDE. [Concomitant]
     Active Substance: GLIMEPIRIDE
  16. METHOCARBAMOL. [Concomitant]
     Active Substance: METHOCARBAMOL
  17. SIMETHICONE (DIMETHICONE) [Concomitant]
     Active Substance: DIMETHICONE
  18. WARFARIN [Concomitant]
     Active Substance: WARFARIN
  19. MELOXICAM. [Concomitant]
     Active Substance: MELOXICAM
  20. PEPCID [Concomitant]
     Active Substance: FAMOTIDINE
  21. ATROVENT [Concomitant]
     Active Substance: IPRATROPIUM BROMIDE
     Dates: start: 20150205
  22. IBUPROFEN. [Concomitant]
     Active Substance: IBUPROFEN
  23. LOSARTAN. [Concomitant]
     Active Substance: LOSARTAN
  24. LEVOCETIRIZINE [Concomitant]
     Active Substance: LEVOCETIRIZINE
     Dates: start: 20150205

REACTIONS (6)
  - Renal injury [Unknown]
  - Rebound acid hypersecretion [Unknown]
  - Tubulointerstitial nephritis [Unknown]
  - Chronic kidney disease [Unknown]
  - Renal failure [Unknown]
  - Death [Fatal]
